FAERS Safety Report 23286920 (Version 1)
Quarter: 2023Q4

REPORT INFORMATION
  Report Type: Spontaneous
  Country: US (occurrence: US)
  Receive Date: 20231212
  Receipt Date: 20231212
  Transmission Date: 20240110
  Serious: Yes (Other)
  Sender: FDA-Public Use
  Company Number: US-AMGEN-USASP2023219932

PATIENT
  Sex: Female

DRUGS (2)
  1. KANJINTI [Suspect]
     Active Substance: TRASTUZUMAB-ANNS
     Indication: Breast cancer
     Dosage: 370 MILLIGRAM (3 X 150MG)
     Route: 065
     Dates: start: 20230208, end: 20231206
  2. PERJETA [Concomitant]
     Active Substance: PERTUZUMAB

REACTIONS (1)
  - Breast cancer [Unknown]
